FAERS Safety Report 10343656 (Version 2)
Quarter: 2014Q3

REPORT INFORMATION
  Report Type: Spontaneous
  Country: US (occurrence: US)
  Receive Date: 20140725
  Receipt Date: 20140814
  Transmission Date: 20150326
  Serious: Yes (Hospitalization, Other)
  Sender: FDA-Public Use
  Company Number: US-GILEAD-2014-0109940

PATIENT
  Age: 74 Year
  Sex: Female

DRUGS (1)
  1. LETAIRIS [Suspect]
     Active Substance: AMBRISENTAN
     Indication: PRODUCT USED FOR UNKNOWN INDICATION
     Dosage: 5 MG, QD
     Route: 065
     Dates: start: 20130206

REACTIONS (8)
  - Multi-organ failure [Unknown]
  - Hospice care [Unknown]
  - Cardiac disorder [Unknown]
  - Chest discomfort [Unknown]
  - Headache [Unknown]
  - Renal disorder [Unknown]
  - Diabetes mellitus [Unknown]
  - Blood glucose increased [Unknown]
